FAERS Safety Report 6308427-8 (Version None)
Quarter: 2009Q3

REPORT INFORMATION
  Report Type: 
  Country: None (occurrence: None)
  Receive Date: 20090810
  Receipt Date: 20090728
  Transmission Date: 20100115
  Serious: Yes (Hospitalization)
  Sender: FDA-Public Use
  Company Number: 2009239138

PATIENT
  Age: 69 Year
  Sex: Male

DRUGS (4)
  1. DALTEPARIN SODIUM [Suspect]
     Indication: LUNG NEOPLASM MALIGNANT
     Dosage: UNK
     Dates: start: 20090226
  2. VINORELBINE (VINORELBINE) [Suspect]
     Indication: LUNG NEOPLASM MALIGNANT
     Dosage: 44 G, DAY 1, INTRAVENOUS 110 G, DAY 8, INTRAVENOUS
     Route: 042
     Dates: start: 20090226, end: 20090409
  3. VINORELBINE (VINORELBINE) [Suspect]
     Indication: LUNG NEOPLASM MALIGNANT
     Dosage: 44 G, DAY 1, INTRAVENOUS 110 G, DAY 8, INTRAVENOUS
     Route: 042
     Dates: start: 20090226, end: 20090409
  4. CISPLATIN [Concomitant]

REACTIONS (5)
  - DEHYDRATION [None]
  - HYPERCALCAEMIA [None]
  - LETHARGY [None]
  - NAUSEA [None]
  - PAIN [None]
